FAERS Safety Report 5006057-1 (Version None)
Quarter: 2006Q1

REPORT INFORMATION
  Report Type: 
  Country: None (occurrence: None)
  Receive Date: 20060328
  Receipt Date: 20050415
  Transmission Date: 20060701
  Serious: Yes (Other)
  Sender: FDA-Public Use
  Company Number: 2005-04-1112

PATIENT

DRUGS (1)
  1. EULEXIN [Suspect]
     Indication: PROSTATE CANCER
     Dosage: ORAL
     Route: 048

REACTIONS (1)
  - DIARRHOEA [None]
